FAERS Safety Report 10526697 (Version 5)
Quarter: 2014Q4

REPORT INFORMATION
  Report Type: Report from Study
  Country: CA (occurrence: CA)
  Receive Date: 20141020
  Receipt Date: 20141223
  Transmission Date: 20150528
  Serious: Yes (Hospitalization)
  Sender: FDA-Public Use
  Company Number: CA-ABBVIE-14K-028-1296860-00

PATIENT
  Age: 21 Year
  Sex: Female
  Weight: 59.02 kg

DRUGS (6)
  1. HUMIRA [Suspect]
     Active Substance: ADALIMUMAB
     Route: 058
     Dates: start: 20141220
  2. PREDNISONE. [Concomitant]
     Active Substance: PREDNISONE
     Indication: CROHN^S DISEASE
     Route: 058
  3. HUMIRA [Suspect]
     Active Substance: ADALIMUMAB
     Indication: CROHN^S DISEASE
     Route: 058
     Dates: start: 20140121, end: 201410
  4. TYLENOL [Concomitant]
     Active Substance: ACETAMINOPHEN
     Indication: CROHN^S DISEASE
     Route: 048
  5. HUMIRA [Suspect]
     Active Substance: ADALIMUMAB
     Route: 058
     Dates: start: 20141018, end: 20141018
  6. GRAVOL [Concomitant]
     Active Substance: DIMENHYDRINATE
     Indication: CROHN^S DISEASE
     Route: 048

REACTIONS (2)
  - Nasopharyngitis [Recovered/Resolved]
  - Intestinal obstruction [Recovered/Resolved]

NARRATIVE: CASE EVENT DATE: 20141014
